FAERS Safety Report 5448188-8 (Version None)
Quarter: 2007Q3

REPORT INFORMATION
  Report Type: 
  Country: None (occurrence: None)
  Receive Date: 20070906
  Receipt Date: 20070827
  Transmission Date: 20080115
  Serious: Yes (Death, Life-Threatening)
  Sender: FDA-Public Use
  Company Number: 2007JP002900

PATIENT
  Age: 54 Year
  Sex: Male
  Weight: 43 kg

DRUGS (14)
  1. PROGRAF [Suspect]
     Indication: RENAL TRANSPLANT
     Dosage: 20 MG, UID/QD, ORAL
     Route: 048
     Dates: start: 19780101, end: 20070611
  2. CELLCEPT [Suspect]
     Indication: RENAL TRANSPLANT
     Dosage: 1000 MG, UID/QD, ORAL
     Route: 048
     Dates: start: 19780101, end: 20070611
  3. PREDNISOLONE [Suspect]
     Indication: RENAL TRANSPLANT
     Dosage: 5 MG, UID/QD, ORAL
     Route: 048
     Dates: start: 19780101, end: 20070617
  4. ROCALTROL [Concomitant]
  5. ULGUT (BENEXATE HYDROCHLORIDE) [Concomitant]
  6. MARZULENE S (LEVOGLUTAMIDE, SODIUM GUALENATE) [Concomitant]
  7. ACTONEL [Concomitant]
  8. VENOGLOBULIN-I [Concomitant]
  9. PIPERACILLIN SODIUM [Concomitant]
  10. CLINDAMYCIN HCL [Concomitant]
  11. AMIKACIN SULFATE [Concomitant]
  12. PIPERACILLIN SODIUM [Concomitant]
  13. MEROPEN (MEROPENEM) [Concomitant]
  14. FUNGUARD (MICAFUNGIN) [Concomitant]

REACTIONS (3)
  - ACUTE RESPIRATORY DISTRESS SYNDROME [None]
  - PNEUMOCYSTIS JIROVECI PNEUMONIA [None]
  - RESPIRATORY FAILURE [None]
